FAERS Safety Report 4524632-5 (Version None)
Quarter: 2004Q4

REPORT INFORMATION
  Report Type: 
  Country: None (occurrence: None)
  Receive Date: 20041117
  Receipt Date: 20030611
  Transmission Date: 20050328
  Serious: Yes (Other)
  Sender: FDA-Public Use
  Company Number: C2003-1456.01

PATIENT
  Age: 36 Year
  Sex: Male

DRUGS (3)
  1. CLOZAPINE [Suspect]
     Dosage: 50MG Q HS, ORAL
     Route: 048
     Dates: start: 20020513
  2. CLOZAPINE [Suspect]
     Dosage: 100MG Q AM, 200 MG Q HS, ORAL
     Route: 048
     Dates: start: 20020513
  3. LITHIUM CARBONATE [Concomitant]

REACTIONS (1)
  - WHITE BLOOD CELL COUNT DECREASED [None]
